FAERS Safety Report 11507520 (Version 1)
Quarter: 2015Q3

REPORT INFORMATION
  Report Type: Spontaneous
  Country: US (occurrence: None)
  Receive Date: 20150914
  Receipt Date: 20150914
  Transmission Date: 20151125
  Serious: Yes (Life-Threatening, Hospitalization, Other)
  Sender: FDA-Public Use
  Company Number: None

PATIENT
  Age: 35 Year
  Sex: Female
  Weight: 88.45 kg

DRUGS (3)
  1. ANTI-DEPPRESANTS [Concomitant]
  2. MIRENA [Suspect]
     Active Substance: LEVONORGESTREL
     Dates: start: 20150415, end: 20150906
  3. SERTRALINE [Concomitant]
     Active Substance: SERTRALINE HYDROCHLORIDE

REACTIONS (13)
  - Malaise [None]
  - Lymphadenopathy [None]
  - Back pain [None]
  - Feeling abnormal [None]
  - Disturbance in attention [None]
  - Jaw disorder [None]
  - Depression [None]
  - Myalgia [None]
  - Quality of life decreased [None]
  - Insomnia [None]
  - Pulmonary pain [None]
  - Hyperhidrosis [None]
  - Device expulsion [None]
